FAERS Safety Report 16376068 (Version 3)
Quarter: 2019Q2

REPORT INFORMATION
  Report Type: Report from Study
  Country: US (occurrence: US)
  Receive Date: 20190531
  Receipt Date: 20190619
  Transmission Date: 20190711
  Serious: Yes (Hospitalization, Other)
  Sender: FDA-Public Use
  Company Number: US-EMD SERONO-7260053

PATIENT
  Age: 52 Year
  Sex: Female

DRUGS (3)
  1. REBIF [Suspect]
     Active Substance: INTERFERON BETA-1A
     Route: 058
     Dates: start: 20170126
  2. REBIF [Suspect]
     Active Substance: INTERFERON BETA-1A
     Route: 058
  3. REBIF [Suspect]
     Active Substance: INTERFERON BETA-1A
     Indication: MULTIPLE SCLEROSIS
     Route: 058
     Dates: start: 20130422

REACTIONS (18)
  - Confusional state [Recovering/Resolving]
  - Pain in extremity [Recovered/Resolved]
  - Wrong technique in product usage process [Unknown]
  - Hospitalisation [Not Recovered/Not Resolved]
  - No adverse event [Unknown]
  - Injection site mass [Not Recovered/Not Resolved]
  - Back pain [Recovered/Resolved]
  - Cognitive disorder [Unknown]
  - Amnesia [Not Recovered/Not Resolved]
  - Feeling abnormal [Unknown]
  - Device malfunction [Unknown]
  - Treatment noncompliance [Unknown]
  - Memory impairment [Unknown]
  - Injection site pain [Not Recovered/Not Resolved]
  - Dementia [Unknown]
  - Injection site induration [Not Recovered/Not Resolved]
  - Product availability issue [Unknown]
  - Mania [Unknown]

NARRATIVE: CASE EVENT DATE: 201905
